FAERS Safety Report 20430122 (Version 1)
Quarter: 2022Q1

REPORT INFORMATION
  Report Type: Report from Study
  Country: FR (occurrence: FR)
  Receive Date: 20220204
  Receipt Date: 20220204
  Transmission Date: 20220424
  Serious: Yes (Hospitalization, Other)
  Sender: FDA-Public Use
  Company Number: FR-SERVIER-S20003494

PATIENT

DRUGS (6)
  1. PEGASPARGASE [Suspect]
     Active Substance: PEGASPARGASE
     Indication: Acute lymphocytic leukaemia
     Dosage: 2400 IU
     Route: 042
     Dates: start: 20190719, end: 20200102
  2. PEGASPARGASE [Suspect]
     Active Substance: PEGASPARGASE
     Dosage: 2475 IU
     Route: 042
     Dates: start: 20200102, end: 20200102
  3. TN UNSPECIFIED [Concomitant]
     Indication: Acute lymphocytic leukaemia
     Dosage: 2 MG
     Route: 042
     Dates: start: 20191230, end: 20200120
  4. TN UNSPECIFIED [Concomitant]
     Indication: Acute lymphocytic leukaemia
     Dosage: 60 MG, D1, D8, D15, D22
     Route: 042
     Dates: start: 20191230, end: 20200120
  5. TN UNSPECIFIED [Concomitant]
     Indication: Acute lymphocytic leukaemia
     Dosage: 20 MG, D1 TO D21
     Route: 048
     Dates: start: 20191220, end: 20200119
  6. TN UNSPECIFIED [Concomitant]
     Indication: Acute lymphocytic leukaemia
     Dosage: 15 MG, D4
     Route: 037
     Dates: start: 20200102

REACTIONS (2)
  - Hypersensitivity [Recovered/Resolved]
  - Steroid diabetes [Recovered/Resolved]

NARRATIVE: CASE EVENT DATE: 20200102
